FAERS Safety Report 4785933-9 (Version None)
Quarter: 2005Q4

REPORT INFORMATION
  Report Type: 
  Country: None (occurrence: None)
  Receive Date: 20051003
  Receipt Date: 20050921
  Transmission Date: 20060501
  Serious: Yes (Death)
  Sender: FDA-Public Use
  Company Number: CN-SANOFI-SYNTHELABO-A01200506403

PATIENT
  Sex: Male
  Weight: 65 kg

DRUGS (4)
  1. PLAVIX [Suspect]
     Indication: CORONARY ANGIOPLASTY
     Route: 048
     Dates: start: 20040922, end: 20041008
  2. STATINS [Suspect]
     Indication: CORONARY ANGIOPLASTY
     Route: 048
     Dates: start: 20040917, end: 20041006
  3. CIMETIDINE [Concomitant]
     Indication: CORONARY ANGIOPLASTY
     Route: 048
     Dates: start: 20040920, end: 20041006
  4. ASPIRIN [Concomitant]
     Indication: CORONARY ANGIOPLASTY
     Route: 048
     Dates: start: 20040917, end: 20041006

REACTIONS (3)
  - HYPERSENSITIVITY [None]
  - NEPHRITIS INTERSTITIAL [None]
  - RENAL FAILURE ACUTE [None]
